FAERS Safety Report 11649776 (Version 2)
Quarter: 2015Q4

REPORT INFORMATION
  Report Type: Report from Study
  Country: CA (occurrence: CA)
  Receive Date: 20151021
  Receipt Date: 20151102
  Transmission Date: 20160304
  Serious: Yes (Other)
  Sender: FDA-Public Use
  Company Number: CA-JNJFOC-20151000963

PATIENT
  Age: 44 Year
  Sex: Female
  Weight: 68.04 kg

DRUGS (8)
  1. REMICADE [Suspect]
     Active Substance: INFLIXIMAB
     Indication: CROHN^S DISEASE
     Route: 042
     Dates: start: 20150930, end: 20151014
  2. REMICADE [Suspect]
     Active Substance: INFLIXIMAB
     Indication: CROHN^S DISEASE
     Dosage: 1-2 DOSES
     Route: 042
     Dates: start: 2006
  3. CIPRO [Concomitant]
     Active Substance: CIPROFLOXACIN HYDROCHLORIDE
     Route: 065
  4. FLAGYL [Concomitant]
     Active Substance: METRONIDAZOLE\METRONIDAZOLE HYDROCHLORIDE
     Route: 048
  5. IMURAN [Concomitant]
     Active Substance: AZATHIOPRINE
     Dosage: 2.5 TABS
     Route: 048
  6. REMICADE [Suspect]
     Active Substance: INFLIXIMAB
     Indication: CROHN^S DISEASE
     Dosage: AT WEEK 0,2, 6 THEN EVERY 8 WEEKS
     Route: 042
     Dates: start: 20150930
  7. REMICADE [Suspect]
     Active Substance: INFLIXIMAB
     Indication: CROHN^S DISEASE
     Dosage: AT WEEK 0,2, 6 THEN EVERY 8 WEEKS
     Route: 042
     Dates: start: 20151014
  8. REMICADE [Suspect]
     Active Substance: INFLIXIMAB
     Indication: CROHN^S DISEASE
     Route: 042
     Dates: start: 20150910

REACTIONS (16)
  - Muscle strain [Recovered/Resolved]
  - Infusion related reaction [Unknown]
  - Pruritus [Unknown]
  - Musculoskeletal pain [Recovered/Resolved]
  - Pain in jaw [Recovered/Resolved]
  - Oropharyngeal pain [Unknown]
  - Eye pruritus [Unknown]
  - Hypotension [Unknown]
  - Trismus [Recovered/Resolved]
  - Hot flush [Unknown]
  - Nausea [Unknown]
  - Sinus congestion [Unknown]
  - Adverse drug reaction [Unknown]
  - Urticaria [Recovered/Resolved]
  - Influenza like illness [Not Recovered/Not Resolved]
  - Pain in extremity [Recovered/Resolved]

NARRATIVE: CASE EVENT DATE: 20150930
